FAERS Safety Report 9200513 (Version 1)
Quarter: 2013Q1

REPORT INFORMATION
  Report Type: Spontaneous
  Country: US (occurrence: US)
  Receive Date: 20130329
  Receipt Date: 20130329
  Transmission Date: 20140127
  Serious: Yes (Hospitalization)
  Sender: FDA-Public Use
  Company Number: US-PFIZER INC-2004044202

PATIENT
  Age: 25 Year
  Sex: Male

DRUGS (2)
  1. MOTRIN [Suspect]
     Indication: PRODUCT USED FOR UNKNOWN INDICATION
     Dosage: 800MG, 1 IN 1 DAY
     Route: 048
  2. SMALLPOX VACCINE [Suspect]
     Indication: PRODUCT USED FOR UNKNOWN INDICATION
     Dosage: DOSE UNSPECIFIED
     Route: 065
     Dates: start: 20030401

REACTIONS (5)
  - Myocarditis [Unknown]
  - Encephalopathy [Unknown]
  - Benign intracranial hypertension [Unknown]
  - Cellulitis [Unknown]
  - Hallucination [Unknown]
